FAERS Safety Report 8797913 (Version 1)
Quarter: 2012Q4

REPORT INFORMATION
  Report Type: 
  Country: DE (occurrence: GB)
  Receive Date: 20120920
  Receipt Date: 20120920
  Transmission Date: 20130627
  Serious: No
  Sender: FDA-Public Use
  Company Number: GB-FRI-1000038725

PATIENT
  Age: 83 Year
  Sex: Female

DRUGS (2)
  1. MEMANTINE [Suspect]
  2. ACETYLCHOLINE [Concomitant]

REACTIONS (2)
  - Hyponatraemia [Recovering/Resolving]
  - Inappropriate antidiuretic hormone secretion [Unknown]
